FAERS Safety Report 7164527-4 (Version None)
Quarter: 2010Q4

REPORT INFORMATION
  Report Type: 
  Country: None (occurrence: None)
  Receive Date: 20101123
  Receipt Date: 20100728
  Transmission Date: 20110411
  Serious: No
  Sender: FDA-Public Use
  Company Number: 016503

PATIENT
  Sex: Female
  Weight: 81.6 kg

DRUGS (4)
  1. CIMZIA [Suspect]
     Indication: CROHN'S DISEASE
     Dosage: (DOSE -2 SHOTS SUBCUTANEOUS)
     Route: 058
     Dates: start: 20091101
  2. PREDNISONE [Concomitant]
  3. LASIX [Concomitant]
  4. POTASSIUM [Concomitant]

REACTIONS (5)
  - ABDOMINAL PAIN [None]
  - NAUSEA [None]
  - PYREXIA [None]
  - VOMITING [None]
  - WEIGHT DECREASED [None]
